FAERS Safety Report 9807614 (Version 1)
Quarter: 2014Q1

REPORT INFORMATION
  Report Type: Spontaneous
  Country: US (occurrence: US)
  Receive Date: 20140110
  Receipt Date: 20140110
  Transmission Date: 20141002
  Serious: No
  Sender: FDA-Public Use
  Company Number: US-SANOFI-AVENTIS-2013SA063369

PATIENT
  Age: 71 Year
  Sex: Female
  Weight: 154 kg

DRUGS (5)
  1. PLAVIX [Suspect]
     Route: 048
  2. NEXIUM [Concomitant]
  3. CALTRATE [Concomitant]
  4. OCUVITE [Concomitant]
  5. ALL OTHER THERAPEUTIC PRODUCTS [Concomitant]

REACTIONS (4)
  - Feeling abnormal [Unknown]
  - Arthropathy [Unknown]
  - Muscle disorder [Unknown]
  - Arthralgia [Unknown]
